FAERS Safety Report 6814256-9 (Version None)
Quarter: 2010Q3

REPORT INFORMATION
  Report Type: 
  Country: None (occurrence: None)
  Receive Date: 20100702
  Receipt Date: 20100621
  Transmission Date: 20110219
  Serious: Yes (Hospitalization)
  Sender: FDA-Public Use
  Company Number: US-ELI_LILLY_AND_COMPANY-US201006006096

PATIENT
  Sex: Female

DRUGS (6)
  1. FORTEO [Suspect]
     Indication: OSTEOPOROSIS
     Dosage: 20 UG, DAILY (1/D)
  2. SYNTHROID [Concomitant]
  3. PREVACID [Concomitant]
  4. ELAVIL [Concomitant]
     Dosage: 20 MG, UNKNOWN
  5. CLONAZEPAM [Concomitant]
  6. CALCIUM CARBONATE [Concomitant]

REACTIONS (3)
  - MALAISE [None]
  - NEPHROLITHIASIS [None]
  - PAIN [None]
